FAERS Safety Report 19110267 (Version 2)
Quarter: 2021Q2

REPORT INFORMATION
  Report Type: Other
  Country: US (occurrence: US)
  Receive Date: 20210409
  Receipt Date: 20210526
  Transmission Date: 20210717
  Serious: Yes (Hospitalization, Other)
  Sender: FDA-Public Use
  Company Number: US-ROCHE-2738331

PATIENT
  Age: 78 Year
  Sex: Female

DRUGS (16)
  1. ACTEMRA [Suspect]
     Active Substance: TOCILIZUMAB
     Indication: GIANT CELL ARTERITIS
     Route: 058
  2. ASPIRIN. [Concomitant]
     Active Substance: ASPIRIN
     Route: 048
  3. AMLODIPINE BESYLATE. [Concomitant]
     Active Substance: AMLODIPINE BESYLATE
     Dosage: BY MOUTH
     Route: 048
  4. SYNTHROID [Concomitant]
     Active Substance: LEVOTHYROXINE SODIUM
     Dosage: BY MOUTH EVERY MORNING
     Route: 048
  5. CRESTOR [Concomitant]
     Active Substance: ROSUVASTATIN CALCIUM
     Dosage: BY MOUTH NIGHTLY
     Route: 048
  6. TENORMIN [Concomitant]
     Active Substance: ATENOLOL
     Route: 048
  7. GLUCOPHAGE XR [Concomitant]
     Active Substance: METFORMIN HYDROCHLORIDE
     Dosage: BY MOUTH WITH MEALS
     Route: 048
  8. ACTEMRA [Suspect]
     Active Substance: TOCILIZUMAB
  9. AREDS [Concomitant]
     Active Substance: MINERALS\VITAMINS
     Dosage: 250?200?40?1 CAPSULE
     Route: 048
  10. NOVOLOG [Concomitant]
     Active Substance: INSULIN ASPART
     Dosage: 100 UNIT/ML SOLUTION
     Route: 058
  11. NOVOLIN NOS [Concomitant]
     Active Substance: INSULIN HUMAN
     Dosage: 100 UNIT/ML
     Route: 058
  12. DELTASONE [Concomitant]
     Active Substance: PREDNISONE
     Dosage: BY MOUTH WITH MEALS
     Route: 048
  13. CALCIUM CARBONATE/VITAMIN D3 [Concomitant]
     Active Substance: CALCIUM CARBONATE\CHOLECALCIFEROL
     Dosage: BY MOUTH WITH MEALS
     Route: 048
  14. PROTONIX [Concomitant]
     Active Substance: PANTOPRAZOLE SODIUM
     Dosage: BY MOUTH
     Route: 048
  15. ACTEMRA [Suspect]
     Active Substance: TOCILIZUMAB
  16. MOBIC [Concomitant]
     Active Substance: MELOXICAM
     Dosage: BY MOUTH
     Route: 048

REACTIONS (4)
  - Hip fracture [Unknown]
  - Infection [Unknown]
  - Fall [Unknown]
  - Diabetic coma [Unknown]

NARRATIVE: CASE EVENT DATE: 20210319
